FAERS Safety Report 16411737 (Version 1)
Quarter: 2019Q2

REPORT INFORMATION
  Report Type: Report from Study
  Country: DE (occurrence: DE)
  Receive Date: 20190610
  Receipt Date: 20190610
  Transmission Date: 20190711
  Serious: Yes (Hospitalization)
  Sender: FDA-Public Use
  Company Number: DE-MYLANLABS-2019M1053681

PATIENT
  Age: 26 Year
  Sex: Male
  Weight: 86.2 kg

DRUGS (8)
  1. LEPONEX [Suspect]
     Active Substance: CLOZAPINE
     Dosage: 13 MILLIGRAM, QD
     Route: 048
     Dates: start: 20030807, end: 20030808
  2. LEPONEX [Suspect]
     Active Substance: CLOZAPINE
     Dosage: 50 MILLIGRAM, QD
     Route: 048
     Dates: start: 20030809, end: 20030810
  3. LEPONEX [Suspect]
     Active Substance: CLOZAPINE
     Dosage: 25 MILLIGRAM, QD
     Route: 048
     Dates: start: 20030911, end: 20030912
  4. LEPONEX [Suspect]
     Active Substance: CLOZAPINE
     Dosage: 25 MILLIGRAM, QD
     Route: 048
     Dates: start: 20030809, end: 20030813
  5. LEPONEX [Suspect]
     Active Substance: CLOZAPINE
     Indication: SCHIZOTYPAL PERSONALITY DISORDER
     Dosage: 75 MILLIGRAM, QD
     Route: 048
     Dates: start: 2002, end: 2002
  6. LEPONEX [Suspect]
     Active Substance: CLOZAPINE
     Dosage: 62.5 MILLIGRAM, QD
     Route: 048
     Dates: start: 20030905, end: 20030908
  7. LEPONEX [Suspect]
     Active Substance: CLOZAPINE
     Dosage: 50 MILLIGRAM, QD
     Route: 048
     Dates: start: 20030825, end: 20030904
  8. LEPONEX [Suspect]
     Active Substance: CLOZAPINE
     Dosage: 38 MILLIGRAM, QD
     Route: 048
     Dates: start: 20030814, end: 20030824

REACTIONS (4)
  - Hypertriglyceridaemia [Recovered/Resolved]
  - Anticholinergic syndrome [Recovered/Resolved]
  - Electroencephalogram abnormal [Recovered/Resolved]
  - Blood cholesterol increased [Recovered/Resolved]

NARRATIVE: CASE EVENT DATE: 20020502
